FAERS Safety Report 18321294 (Version 1)
Quarter: 2020Q3

REPORT INFORMATION
  Report Type: Spontaneous
  Country: IT (occurrence: IT)
  Receive Date: 20200928
  Receipt Date: 20200928
  Transmission Date: 20201103
  Serious: Yes (Hospitalization, Disabling)
  Sender: FDA-Public Use
  Company Number: IT-009507513-2009ITA010429

PATIENT
  Age: 17 Year
  Sex: Male
  Weight: 65 kg

DRUGS (1)
  1. PROPECIA [Suspect]
     Active Substance: FINASTERIDE
     Indication: ANDROGENETIC ALOPECIA
     Dosage: 1 MILLIGRAM, QD, HALF A TABLET
     Route: 048
     Dates: start: 2002

REACTIONS (3)
  - Post 5-alpha-reductase inhibitor syndrome [Unknown]
  - Wrong technique in product usage process [Unknown]
  - Poor dental condition [Not Recovered/Not Resolved]

NARRATIVE: CASE EVENT DATE: 2002
